FAERS Safety Report 16044961 (Version 2)
Quarter: 2019Q2

REPORT INFORMATION
  Report Type: Spontaneous
  Country: DE (occurrence: DE)
  Receive Date: 20190307
  Receipt Date: 20190409
  Transmission Date: 20190711
  Serious: Yes (Other)
  Sender: FDA-Public Use
  Company Number: DE-AUROBINDO-AUR-APL-2018-053077

PATIENT

DRUGS (7)
  1. KISQALI [Suspect]
     Active Substance: RIBOCICLIB
     Dosage: 600 MILLIGRAM, ONCE A DAY, (21 DAYS OF INTAKE, THEN 7 DAYS PAUSE)
     Route: 048
     Dates: start: 20181116, end: 20181206
  2. KISQALI [Suspect]
     Active Substance: RIBOCICLIB
     Dosage: 600 MILLIGRAM, ONCE A DAY, (21 DAYS OF INTAKE, THEN 7 DAYS PAUSE)
     Route: 048
     Dates: start: 20190111, end: 20190131
  3. KISQALI [Suspect]
     Active Substance: RIBOCICLIB
     Indication: BREAST CANCER METASTATIC
     Dosage: 600 MILLIGRAM, DAILY (21 DAYS)
     Route: 048
     Dates: start: 20180824, end: 20180913
  4. LETROZOLE. [Suspect]
     Active Substance: LETROZOLE
     Indication: BREAST CANCER METASTATIC
     Dosage: 2.5 MILLIGRAM, DAILY
     Route: 048
     Dates: start: 20180824
  5. KISQALI [Suspect]
     Active Substance: RIBOCICLIB
     Dosage: 600 MILLIGRAM, ONCE A DAY, (21 DAYS OF INTAKE, THEN 7 DAYS PAUSE)
     Route: 048
     Dates: start: 20181214, end: 20190103
  6. KISQALI [Suspect]
     Active Substance: RIBOCICLIB
     Dosage: 600 MILLIGRAM, ONCE A DAY, (21 DAYS)
     Route: 048
     Dates: start: 20181019, end: 20181108
  7. KISQALI [Suspect]
     Active Substance: RIBOCICLIB
     Dosage: 600 MILLIGRAM, DAILY (21 DAYS)
     Route: 048
     Dates: start: 20180921, end: 20181011

REACTIONS (3)
  - General physical condition decreased [Not Recovered/Not Resolved]
  - Leukopenia [Recovered/Resolved]
  - Neutropenia [Recovered/Resolved]

NARRATIVE: CASE EVENT DATE: 20181008
